FAERS Safety Report 20055981 (Version 2)
Quarter: 2022Q1

REPORT INFORMATION
  Report Type: Spontaneous
  Country: US (occurrence: US)
  Receive Date: 20211111
  Receipt Date: 20220228
  Transmission Date: 20220424
  Serious: No
  Sender: FDA-Public Use
  Company Number: US-EXELIXIS-CABO-21044897

PATIENT
  Age: 62 Year
  Sex: Male

DRUGS (5)
  1. OPDIVO [Suspect]
     Active Substance: NIVOLUMAB
     Indication: Product used for unknown indication
     Dosage: UNK
     Route: 065
  2. CABOMETYX [Suspect]
     Active Substance: CABOZANTINIB S-MALATE
     Indication: Renal cancer
     Dosage: 40 MG, QD
     Route: 048
     Dates: start: 20210209
  3. LEVOTHYROXINE [Concomitant]
     Active Substance: LEVOTHYROXINE
     Indication: Product used for unknown indication
     Dosage: UNK
     Route: 065
  4. HYDROCORTISONE CYPIONATE [Concomitant]
     Active Substance: HYDROCORTISONE CYPIONATE
     Indication: Product used for unknown indication
     Dosage: UNK
     Route: 065
  5. PREDNISOLONE ACETATE [Concomitant]
     Active Substance: PREDNISOLONE ACETATE
     Indication: Product used for unknown indication
     Dosage: UNK
     Route: 065

REACTIONS (5)
  - Neuralgia [Unknown]
  - Blister [Unknown]
  - Diarrhoea [Unknown]
  - Fatigue [Unknown]
  - Vomiting [Unknown]

NARRATIVE: CASE EVENT DATE: 20210925
